FAERS Safety Report 11522810 (Version 2)
Quarter: 2015Q4

REPORT INFORMATION
  Report Type: Spontaneous
  Country: US (occurrence: US)
  Receive Date: 20150918
  Receipt Date: 20151021
  Transmission Date: 20160304
  Serious: Yes (Hospitalization)
  Sender: FDA-Public Use
  Company Number: US-ACTELION-A-NJ2015-123886

PATIENT
  Age: 53 Year
  Sex: Female

DRUGS (12)
  1. TORSEMIDE. [Concomitant]
     Active Substance: TORSEMIDE
  2. DIGOXIN. [Concomitant]
     Active Substance: DIGOXIN
  3. FERROUS SULFATE [Concomitant]
     Active Substance: FERROUS SULFATE\FERROUS SULFATE, DRIED
  4. ALBUTEROL. [Concomitant]
     Active Substance: ALBUTEROL
  5. TYLENOL [Concomitant]
     Active Substance: ACETAMINOPHEN
  6. ATENOLOL. [Concomitant]
     Active Substance: ATENOLOL
  7. OPSUMIT [Suspect]
     Active Substance: MACITENTAN
     Indication: PULMONARY ARTERIAL HYPERTENSION
     Dosage: 10 MG, UNK
     Route: 048
     Dates: start: 20150820
  8. ULORIC [Concomitant]
     Active Substance: FEBUXOSTAT
  9. POTASSIUM [Concomitant]
     Active Substance: POTASSIUM
  10. LASIX [Concomitant]
     Active Substance: FUROSEMIDE
  11. ZYRTEC [Concomitant]
     Active Substance: CETIRIZINE HYDROCHLORIDE
  12. WARFARIN [Concomitant]
     Active Substance: WARFARIN

REACTIONS (3)
  - Renal injury [Unknown]
  - Electrolyte imbalance [Unknown]
  - Fluid overload [Unknown]

NARRATIVE: CASE EVENT DATE: 20150825
